FAERS Safety Report 18409651 (Version 1)
Quarter: 2020Q4

REPORT INFORMATION
  Report Type: Spontaneous
  Country: US (occurrence: US)
  Receive Date: 20201021
  Receipt Date: 20201021
  Transmission Date: 20210114
  Serious: Yes (Death)
  Sender: FDA-Public Use
  Company Number: None

PATIENT
  Sex: Male

DRUGS (9)
  1. CARVEDILOL. [Concomitant]
     Active Substance: CARVEDILOL
  2. FENOFIBRATE. [Concomitant]
     Active Substance: FENOFIBRATE
  3. ELIQUIS [Concomitant]
     Active Substance: APIXABAN
  4. TAMSULOSIN [Concomitant]
     Active Substance: TAMSULOSIN
  5. ESCITALOPRAM [Concomitant]
     Active Substance: ESCITALOPRAM OXALATE
  6. REPATHA [Suspect]
     Active Substance: EVOLOCUMAB
     Indication: HYPERLIPIDAEMIA
     Route: 058
     Dates: start: 20200714
  7. MEMANTINE. [Concomitant]
     Active Substance: MEMANTINE
  8. EZETIMIBE. [Concomitant]
     Active Substance: EZETIMIBE
  9. RANOLAZINE. [Concomitant]
     Active Substance: RANOLAZINE

REACTIONS (1)
  - Death [None]
